FAERS Safety Report 4864912-7 (Version None)
Quarter: 2005Q4

REPORT INFORMATION
  Report Type: 
  Country: None (occurrence: None)
  Receive Date: 20051201
  Receipt Date: 20050728
  Transmission Date: 20060501
  Serious: No
  Sender: FDA-Public Use
  Company Number: 2005PV000701

PATIENT
  Age: 52 Year
  Sex: Female
  Weight: 115.2136 kg

DRUGS (7)
  1. BYETTA [Suspect]
     Indication: DIABETES MELLITUS NON-INSULIN-DEPENDENT
     Dosage: 10 MCG; BID; SC
     Route: 058
     Dates: start: 20050623
  2. GLUCOPHAGE [Concomitant]
  3. ACTOS [Concomitant]
  4. LIPITOR [Concomitant]
  5. ZOLOFT [Concomitant]
  6. PREVACID [Concomitant]
  7. MULTIVITAMIN [Concomitant]

REACTIONS (1)
  - MEDICATION ERROR [None]
